FAERS Safety Report 6228631-7 (Version None)
Quarter: 2009Q2

REPORT INFORMATION
  Report Type: 
  Country: None (occurrence: None)
  Receive Date: 20090612
  Receipt Date: 20090612
  Transmission Date: 20091009
  Serious: Yes (Other)
  Sender: FDA-Public Use
  Company Number: ES-AMGEN-UK224926

PATIENT
  Age: 43 Year
  Sex: Male
  Weight: 64 kg

DRUGS (7)
  1. ARANESP [Suspect]
     Indication: DIALYSIS
     Route: 058
     Dates: start: 20050531, end: 20070507
  2. EPOETIN ALFA [Suspect]
     Route: 042
     Dates: start: 20060621
  3. CALCIUM [Concomitant]
     Route: 048
     Dates: start: 20060621
  4. RENAGEL [Concomitant]
     Route: 048
     Dates: start: 20061201
  5. CARVEDILOL [Concomitant]
     Route: 048
     Dates: start: 20061201
  6. ADALAT [Concomitant]
     Route: 048
     Dates: start: 20061117
  7. BECOZYME [Concomitant]
     Route: 048
     Dates: start: 20061117

REACTIONS (1)
  - APLASIA PURE RED CELL [None]
